FAERS Safety Report 6531185-9 (Version None)
Quarter: 2010Q1

REPORT INFORMATION
  Report Type: 
  Country: None (occurrence: None)
  Receive Date: 20100108
  Receipt Date: 20091228
  Transmission Date: 20100710
  Serious: Yes (Death, Hospitalization)
  Sender: FDA-Public Use
  Company Number: HK-ROCHE-677730

PATIENT
  Age: 13 Year
  Sex: Female

DRUGS (10)
  1. CEFTRIAXONE [Suspect]
     Indication: DRUG USE FOR UNKNOWN INDICATION
     Route: 065
     Dates: start: 19971123
  2. RIBAVIRIN [Suspect]
     Indication: AVIAN INFLUENZA
     Route: 065
     Dates: start: 19971203, end: 19971211
  3. AMANTADINE HCL [Concomitant]
     Route: 065
     Dates: start: 19971203, end: 19971211
  4. CLARITHROMYCIN [Concomitant]
     Route: 065
     Dates: start: 19971126, end: 19971127
  5. VANCOMYCIN [Concomitant]
     Route: 065
     Dates: start: 19971128, end: 19971202
  6. IMIPENEM [Concomitant]
     Route: 065
     Dates: start: 19971129, end: 19971211
  7. DOXYCYCLIN [Concomitant]
     Route: 065
     Dates: start: 19971207, end: 19971215
  8. CIPROFLOXACIN [Concomitant]
     Dates: start: 19971211, end: 19971215
  9. SULPERAZON [Concomitant]
     Route: 065
     Dates: start: 19971217, end: 19971221
  10. ACETAMINOPHEN [Concomitant]
     Dosage: FREQUENCY: AS PER REQUIREMENT
     Route: 065

REACTIONS (2)
  - ACUTE RESPIRATORY DISTRESS SYNDROME [None]
  - MULTI-ORGAN FAILURE [None]
